FAERS Safety Report 9720607 (Version 2)
Quarter: 2013Q4

REPORT INFORMATION
  Report Type: Report from Study
  Country: MX (occurrence: MX)
  Receive Date: 20131129
  Receipt Date: 20131129
  Transmission Date: 20140711
  Serious: Yes (Hospitalization, Other)
  Sender: FDA-Public Use
  Company Number: PHHY2013MX134851

PATIENT
  Age: 71 Year
  Sex: Male

DRUGS (3)
  1. ONBREZ [Suspect]
     Indication: CHRONIC OBSTRUCTIVE PULMONARY DISEASE
     Dosage: 300 UG, (DAILY)
     Dates: start: 20131118
  2. ONBREZ [Suspect]
     Dosage: 300 UG, (2 CAPSULE DAILY)
  3. SERETIDE [Concomitant]
     Indication: BRONCHIAL DISORDER
     Dosage: 2 DF, DAILY

REACTIONS (5)
  - Lung disorder [Unknown]
  - Chest pain [Unknown]
  - Renal disorder [Not Recovered/Not Resolved]
  - Hypertension [Not Recovered/Not Resolved]
  - Inappropriate schedule of drug administration [Not Recovered/Not Resolved]
